FAERS Safety Report 19713179 (Version 1)
Quarter: 2021Q3

REPORT INFORMATION
  Report Type: Spontaneous
  Country: LB (occurrence: LB)
  Receive Date: 20210816
  Receipt Date: 20210816
  Transmission Date: 20211014
  Serious: Yes (Other)
  Sender: FDA-Public Use
  Company Number: LB-ABBVIE-21K-093-4037073-00

PATIENT
  Age: 2 Day

DRUGS (1)
  1. SURVANTA [Suspect]
     Active Substance: BERACTANT
     Indication: NEONATAL RESPIRATORY DISTRESS SYNDROME
     Dosage: SINGLE DOSE AT BIRTH
     Route: 007
     Dates: start: 2020

REACTIONS (1)
  - Pulmonary haemorrhage [Unknown]

NARRATIVE: CASE EVENT DATE: 2020
